FAERS Safety Report 9482317 (Version 5)
Quarter: 2014Q1

REPORT INFORMATION
  Report Type: Spontaneous
  Country: US (occurrence: US)
  Receive Date: 20130828
  Receipt Date: 20140321
  Transmission Date: 20141002
  Serious: No
  Sender: FDA-Public Use
  Company Number: US-009507513-1308USA005303

PATIENT
  Age: 60 Year
  Sex: Male

DRUGS (6)
  1. VICTRELIS [Suspect]
     Indication: CHRONIC HEPATITIS C
     Dosage: UNK
     Route: 048
     Dates: end: 20140109
  2. REBETOL [Suspect]
     Indication: CHRONIC HEPATITIS C
     Dosage: 400 MG, TID
     Route: 048
     Dates: start: 20130627, end: 201311
  3. REBETOL [Suspect]
     Dosage: 600 MG/DAY
     Route: 048
     Dates: start: 201311, end: 20131219
  4. REBETOL [Suspect]
     Dosage: 1000 MG/DAY
     Route: 048
     Dates: start: 20131219, end: 20140109
  5. PEGASYS [Suspect]
     Indication: CHRONIC HEPATITIS C
     Dosage: 180 MICROGRAM, QW,, PRE-FILLED SYRINGE
     Route: 058
     Dates: start: 20130627, end: 20140109
  6. HYDROXYUREA [Concomitant]
     Indication: PLATELET COUNT INCREASED
     Dosage: UNK

REACTIONS (8)
  - Full blood count decreased [Unknown]
  - Rash pruritic [Unknown]
  - Skin mass [Unknown]
  - Abdominal discomfort [Unknown]
  - Pruritus [Unknown]
  - Dry mouth [Unknown]
  - Nausea [Unknown]
  - Diarrhoea [Recovered/Resolved]
